FAERS Safety Report 8402542-0 (Version None)
Quarter: 2012Q2

REPORT INFORMATION
  Report Type: 
  Country: None (occurrence: None)
  Receive Date: 20120601
  Receipt Date: 20120523
  Transmission Date: 20120825
  Serious: Yes (Other)
  Sender: FDA-Public Use
  Company Number: JP-VERTEX PHARMACEUTICALS INC.-AE-2012-007341

PATIENT
  Age: 58 Year
  Sex: Male

DRUGS (12)
  1. TOWART L [Concomitant]
     Route: 048
  2. VOGLIBOSE [Concomitant]
     Route: 048
     Dates: end: 20120516
  3. TELAVIC (TELAPREVIR) [Suspect]
     Route: 048
     Dates: start: 20120512, end: 20120514
  4. REBETOL [Concomitant]
     Indication: HEPATITIS C
     Route: 048
     Dates: start: 20120509, end: 20120517
  5. JANUVIA [Concomitant]
     Route: 048
     Dates: end: 20120516
  6. PEG-INTRON [Concomitant]
     Indication: HEPATITIS C
     Route: 058
     Dates: start: 20120509, end: 20120515
  7. REBETOL [Concomitant]
     Route: 048
     Dates: start: 20120518
  8. ASPIRIN [Concomitant]
     Route: 048
  9. PEG-INTRON [Concomitant]
     Route: 058
     Dates: start: 20120522
  10. HUMALOG [Concomitant]
     Route: 058
     Dates: start: 20120516
  11. TELAVIC (TELAPREVIR) [Suspect]
     Indication: HEPATITIS C
     Route: 048
     Dates: start: 20120509, end: 20120511
  12. ALLOPURINOL [Concomitant]
     Route: 048

REACTIONS (1)
  - DRUG ERUPTION [None]
